FAERS Safety Report 13559452 (Version 1)
Quarter: 2017Q2

REPORT INFORMATION
  Report Type: Spontaneous
  Country: US (occurrence: US)
  Receive Date: 20170518
  Receipt Date: 20170518
  Transmission Date: 20170830
  Serious: No
  Sender: FDA-Public Use
  Company Number: US-SA-2017SA049927

PATIENT
  Age: 44 Year
  Sex: Female

DRUGS (2)
  1. RIFADIN [Suspect]
     Active Substance: RIFAMPIN
     Route: 042
     Dates: start: 201702
  2. RIFADIN [Suspect]
     Active Substance: RIFAMPIN
     Route: 042

REACTIONS (1)
  - Product use issue [Unknown]
